FAERS Safety Report 17116315 (Version 1)
Quarter: 2019Q4

REPORT INFORMATION
  Report Type: Spontaneous
  Country: IT (occurrence: IT)
  Receive Date: 20191205
  Receipt Date: 20191205
  Transmission Date: 20200122
  Serious: Yes (Hospitalization, Other)
  Sender: FDA-Public Use
  Company Number: IT-MYLANLABS-2019M1118689

PATIENT
  Age: 17 Year
  Sex: Female

DRUGS (6)
  1. CIPROFLOXACIN. [Suspect]
     Active Substance: CIPROFLOXACIN
     Indication: PSEUDOMONAS INFECTION
     Dosage: UNK
  2. CIPROFLOXACIN. [Suspect]
     Active Substance: CIPROFLOXACIN
     Indication: INTRACRANIAL INFECTION
     Dosage: 400 MILLIGRAM, BID
     Dates: start: 20190102, end: 20190201
  3. CEFTOLOZANE SULFATE W/TAZOBACTAM SODIUM [Suspect]
     Active Substance: CEFTOLOZANE SULFATE\TAZOBACTAM SODIUM
     Indication: PSEUDOMONAS INFECTION
     Dosage: UNK
     Dates: start: 20190102, end: 20190201
  4. CEFTOLOZANE SULFATE W/TAZOBACTAM SODIUM [Suspect]
     Active Substance: CEFTOLOZANE SULFATE\TAZOBACTAM SODIUM
     Indication: INTRACRANIAL INFECTION
     Dosage: 3 GRAM, Q8H
     Dates: start: 20181202, end: 20181222
  5. COLISTIN [Suspect]
     Active Substance: COLISTIN
     Indication: INTRACRANIAL INFECTION
     Dosage: UNK
     Route: 037
     Dates: start: 20181202, end: 20181222
  6. COLISTIN [Suspect]
     Active Substance: COLISTIN
     Indication: PSEUDOMONAS INFECTION
     Dosage: UNK
     Route: 037
     Dates: start: 20190102, end: 20190201

REACTIONS (5)
  - Pseudomonas infection [Recovering/Resolving]
  - Off label use [Unknown]
  - Dehiscence [Recovering/Resolving]
  - Wound secretion [Recovering/Resolving]
  - Osteomyelitis [Recovering/Resolving]

NARRATIVE: CASE EVENT DATE: 201812
